FAERS Safety Report 7929719-2 (Version None)
Quarter: 2011Q4

REPORT INFORMATION
  Report Type: 
  Country: None (occurrence: None)
  Receive Date: 20111121
  Receipt Date: 20111110
  Transmission Date: 20120403
  Serious: No
  Sender: FDA-Public Use
  Company Number: US-JNJFOC-20111104973

PATIENT
  Age: 70 Year
  Sex: Female
  Weight: 58.06 kg

DRUGS (8)
  1. INVEGA SUSTENNA [Suspect]
     Indication: PSYCHOTIC BEHAVIOUR
     Dosage: ALTERNATE INITIATION REGIMEN DAY 1 AND 8
     Route: 030
     Dates: start: 20111001, end: 20111101
  2. PLAVIX [Concomitant]
     Indication: ANTICOAGULANT THERAPY
     Route: 048
  3. PRIMIDONE [Concomitant]
     Route: 048
  4. LEVOTHYROXINE SODIUM [Concomitant]
     Indication: THYROID DISORDER
     Route: 048
  5. GABAPENTIN [Concomitant]
     Indication: NEUROPATHY PERIPHERAL
     Dosage: 300 MG AM, 600 MG PM
     Route: 048
  6. FLONASE [Concomitant]
     Indication: SINUS DISORDER
     Route: 045
  7. INVEGA SUSTENNA [Suspect]
     Indication: MAJOR DEPRESSION
     Dosage: ALTERNATE INITIATION REGIMEN DAY 1 AND 8
     Route: 030
     Dates: start: 20111001, end: 20111101
  8. REMERON [Concomitant]
     Indication: DEPRESSION
     Route: 048

REACTIONS (1)
  - TREMOR [None]
